FAERS Safety Report 14842911 (Version 1)
Quarter: 2018Q2

REPORT INFORMATION
  Report Type: Spontaneous
  Country: US (occurrence: US)
  Receive Date: 20180419
  Receipt Date: 20180419
  Transmission Date: 20180711
  Serious: Yes (Disabling)
  Sender: FDA-Public Use
  Company Number: None

PATIENT
  Age: 46 Year
  Sex: Male
  Weight: 76.5 kg

DRUGS (2)
  1. PROBIOTICS [Concomitant]
     Active Substance: PROBIOTICS NOS
  2. MOXIFLOXACIN HCL 500 MG [Suspect]
     Active Substance: MOXIFLOXACIN HYDROCHLORIDE
     Indication: EYE INFECTION
     Dosage: ?          QUANTITY:3 TABLET(S);?
     Route: 048
     Dates: start: 20180315, end: 20180317

REACTIONS (9)
  - Panic attack [None]
  - Depressed level of consciousness [None]
  - Insomnia [None]
  - Arthralgia [None]
  - Dyspepsia [None]
  - Agitation [None]
  - Tinnitus [None]
  - Arthropathy [None]
  - Asthenia [None]

NARRATIVE: CASE EVENT DATE: 20180317
